FAERS Safety Report 9244489 (Version 1)
Quarter: 2013Q2

REPORT INFORMATION
  Report Type: Spontaneous
  Country: CA (occurrence: CA)
  Receive Date: 20130422
  Receipt Date: 20130422
  Transmission Date: 20140414
  Serious: Yes (Other)
  Sender: FDA-Public Use
  Company Number: CA-AMGEN-CANSP2013027203

PATIENT
  Sex: 0

DRUGS (2)
  1. VECTIBIX [Suspect]
     Indication: COLORECTAL CANCER METASTATIC
     Dosage: 6 MG/KG, EVERY 2 WEEKS
  2. IRINOTECAN [Concomitant]
     Indication: COLORECTAL CANCER METASTATIC
     Dosage: 180 MG/M2, UNK

REACTIONS (10)
  - Ocular toxicity [Unknown]
  - General physical health deterioration [Unknown]
  - Skin toxicity [Unknown]
  - Hypomagnesaemia [Unknown]
  - Fatigue [Unknown]
  - Paronychia [Unknown]
  - Abdominal pain [Unknown]
  - Constipation [Unknown]
  - Diarrhoea [Unknown]
  - Vomiting [Unknown]
